FAERS Safety Report 8821032 (Version 1)
Quarter: 2012Q4

REPORT INFORMATION
  Report Type: 
  Country: US (occurrence: US)
  Receive Date: 20121002
  Receipt Date: 20121002
  Transmission Date: 20130627
  Serious: Yes (Hospitalization)
  Sender: FDA-Public Use
  Company Number: US-ARROW-2012-16790

PATIENT
  Age: 43 Year
  Sex: Male

DRUGS (4)
  1. TACROLIMUS (UNKNOWN) [Suspect]
     Indication: RENAL TRANSPLANT
     Dosage: 12 mg, bid
     Route: 065
  2. TACROLIMUS (UNKNOWN) [Suspect]
     Dosage: 9 mg, bid
     Route: 065
  3. MYCOPHENOLATE MOFETIL (UNKNOWN) [Suspect]
     Indication: RENAL TRANSPLANT
     Dosage: 750 mg, bid
     Route: 065
  4. PREDNISONE (WATSON LABORATORIES) [Suspect]
     Indication: RENAL TRANSPLANT
     Dosage: 20 mg, daily
     Route: 065

REACTIONS (1)
  - Psychotic disorder [Recovering/Resolving]
